FAERS Safety Report 4438687-X (Version None)
Quarter: 2004Q3

REPORT INFORMATION
  Report Type: 
  Country: None (occurrence: None)
  Receive Date: 20040830
  Receipt Date: 20040729
  Transmission Date: 20050211
  Serious: Yes (Disabling, Other)
  Sender: FDA-Public Use
  Company Number: 2004044053

PATIENT
  Age: 22 Month
  Sex: Female
  Weight: 13.1543 kg

DRUGS (3)
  1. ZYRTEC [Suspect]
     Indication: ILL-DEFINED DISORDER
     Dosage: 10 MG (1 MG, 1 IN 1D), ORAL
     Route: 048
     Dates: start: 20040501, end: 20040626
  2. LANSOPRAZOLE [Concomitant]
  3. LACTULOSE [Concomitant]

REACTIONS (11)
  - ACCIDENTAL EXPOSURE [None]
  - CONDITION AGGRAVATED [None]
  - DYSPNOEA [None]
  - EAR INFECTION [None]
  - GASTROOESOPHAGEAL REFLUX DISEASE [None]
  - HEARING IMPAIRED [None]
  - HYPERAESTHESIA [None]
  - HYPERSOMNIA [None]
  - MEDICATION ERROR [None]
  - PERIPHERAL SENSORY NEUROPATHY [None]
  - VESTIBULAR DISORDER [None]
